FAERS Safety Report 12544194 (Version 1)
Quarter: 2016Q3

REPORT INFORMATION
  Report Type: Report from Study
  Country: US (occurrence: US)
  Receive Date: 20160711
  Receipt Date: 20160711
  Transmission Date: 20161109
  Serious: No
  Sender: FDA-Public Use
  Company Number: US-AMGEN-USASL2016085163

PATIENT
  Age: 43 Year
  Sex: Female

DRUGS (1)
  1. ENBREL [Suspect]
     Active Substance: ETANERCEPT
     Indication: PRODUCT USED FOR UNKNOWN INDICATION
     Dosage: UNK
     Route: 065

REACTIONS (6)
  - Rash papular [Unknown]
  - Drug administration error [Unknown]
  - Rash pruritic [Unknown]
  - Nausea [Unknown]
  - Incorrect product storage [Unknown]
  - Skin warm [Unknown]

NARRATIVE: CASE EVENT DATE: 201606
